FAERS Safety Report 8388704-X (Version None)
Quarter: 2012Q2

REPORT INFORMATION
  Report Type: 
  Country: None (occurrence: None)
  Receive Date: 20120527
  Receipt Date: 20120227
  Transmission Date: 20120825
  Serious: Yes (Life-Threatening, Hospitalization, Other)
  Sender: FDA-Public Use
  Company Number: PHHY2010FR20246

PATIENT
  Sex: Female

DRUGS (26)
  1. OXYGEN THERAPY/HYPERBARIC OXYGEN THERAPY [Concomitant]
  2. CATHETERIZATION [Concomitant]
  3. POLYETHYLENE GLYCOL [Concomitant]
  4. TETRAZEPAM [Concomitant]
  5. TAZOBACTAM [Concomitant]
  6. SILVER SULFADIAZINE [Concomitant]
  7. FOLIC ACID [Concomitant]
  8. DESLORATADINE [Suspect]
     Dosage: 5 MG, QD
     Route: 048
     Dates: end: 20100327
  9. FLUIDABAK COLLYRE [Suspect]
     Dosage: 1.5 % (OPH), UNK
     Route: 047
     Dates: start: 20091218, end: 20100327
  10. AMOXICILLIN [Concomitant]
     Dosage: UNK
  11. CHONDROSULF [Concomitant]
  12. PROPOXYPHENE HCL AND ACETAMINOPHEN [Concomitant]
  13. EXJADE [Suspect]
     Indication: SERUM FERRITIN INCREASED
  14. ACETAMINOPHEN [Suspect]
     Dosage: 1 G, PRN
     Route: 048
     Dates: end: 20100327
  15. NEORECORMON [Suspect]
     Dosage: UNK
  16. VITAMIN K TAB [Concomitant]
  17. CLARITHROMYCIN [Concomitant]
     Dosage: 500 MG, UNK
  18. NEXIUM [Concomitant]
     Dosage: 40 MG, UNK
  19. EXJADE [Suspect]
     Indication: SIDEROBLASTIC ANAEMIA
     Dosage: 1000 MG DAILY OR 2 DF/DAY
     Route: 048
     Dates: start: 20100316, end: 20100325
  20. BETAHISTINE [Suspect]
     Dosage: 8 MG, QD
     Route: 048
     Dates: end: 20100327
  21. CROMABAK COLLYRE [Suspect]
     Dosage: UNK
     Route: 047
     Dates: start: 20091218, end: 20100327
  22. PROTON PUMP INHIBITORS [Concomitant]
     Dosage: 200 MG DAILY
  23. EXJADE [Suspect]
     Indication: IRON OVERLOAD
  24. PIPERACILLIN [Concomitant]
  25. CIPROFLOXACIN [Concomitant]
  26. ACETAMINOPHEN [Concomitant]
     Dosage: UNK

REACTIONS (86)
  - BLOOD CREATINE PHOSPHOKINASE INCREASED [None]
  - LYMPHOCYTIC INFILTRATION [None]
  - OEDEMA GENITAL [None]
  - HYPERKINESIA [None]
  - LUNG DISORDER [None]
  - SEPSIS [None]
  - GASTRIC ULCER [None]
  - APALLIC SYNDROME [None]
  - INFLAMMATION [None]
  - SINUSITIS [None]
  - HYPOCALCAEMIA [None]
  - RASH MACULO-PAPULAR [None]
  - RASH [None]
  - MULTI-ORGAN FAILURE [None]
  - TONGUE OEDEMA [None]
  - HYPOXIA [None]
  - RENAL IMPAIRMENT [None]
  - ULCER HAEMORRHAGE [None]
  - HYPERVENTILATION [None]
  - METABOLIC ACIDOSIS [None]
  - ALLODYNIA [None]
  - HEPATIC ENZYME INCREASED [None]
  - PROTHROMBIN TIME SHORTENED [None]
  - KERATITIS [None]
  - CARDIAC ARREST [None]
  - PRURITUS [None]
  - CONFUSIONAL STATE [None]
  - HEPATOCELLULAR INJURY [None]
  - THROMBOCYTOPENIA [None]
  - CYANOSIS [None]
  - SKIN LESION [None]
  - HYPOVOLAEMIA [None]
  - HELICOBACTER INFECTION [None]
  - GASTROINTESTINAL DISORDER [None]
  - KNEE DEFORMITY [None]
  - SKIN NECROSIS [None]
  - CARDIAC FIBRILLATION [None]
  - VOMITING [None]
  - OXYGEN SATURATION ABNORMAL [None]
  - JOINT STIFFNESS [None]
  - CARDIAC MURMUR [None]
  - DRUG RASH WITH EOSINOPHILIA AND SYSTEMIC SYMPTOMS [None]
  - PYREXIA [None]
  - FIBRINOLYSIS [None]
  - RESPIRATORY FAILURE [None]
  - THROMBOSIS [None]
  - TOXIC SKIN ERUPTION [None]
  - ANAEMIA [None]
  - TRACHEAL INJURY [None]
  - PLEURAL EFFUSION [None]
  - DIARRHOEA [None]
  - BODY TEMPERATURE INCREASED [None]
  - SHOCK [None]
  - LICHENOID KERATOSIS [None]
  - EYELID OEDEMA [None]
  - COMA [None]
  - BRADYCARDIA [None]
  - CELL DEATH [None]
  - COGNITIVE DISORDER [None]
  - ANGIOEDEMA [None]
  - ABDOMINAL PAIN [None]
  - BURNS THIRD DEGREE [None]
  - SERUM FERRITIN INCREASED [None]
  - CEREBRAL ISCHAEMIA [None]
  - DRY MOUTH [None]
  - FOOT DEFORMITY [None]
  - HYPOXIC-ISCHAEMIC ENCEPHALOPATHY [None]
  - DISSEMINATED INTRAVASCULAR COAGULATION [None]
  - HAEMODYNAMIC INSTABILITY [None]
  - RHABDOMYOLYSIS [None]
  - NEUROLOGICAL DECOMPENSATION [None]
  - ARRHYTHMIA [None]
  - ALANINE AMINOTRANSFERASE INCREASED [None]
  - ABDOMINAL BRUIT [None]
  - HYPOTENSION [None]
  - CREPITATIONS [None]
  - LYMPHOCYTE MORPHOLOGY ABNORMAL [None]
  - LEUKOCYTOSIS [None]
  - FACE OEDEMA [None]
  - SEPTIC SHOCK [None]
  - PURPURA [None]
  - ANURIA [None]
  - TACHYCARDIA [None]
  - CYTOLYTIC HEPATITIS [None]
  - ASPARTATE AMINOTRANSFERASE INCREASED [None]
  - GENERAL PHYSICAL HEALTH DETERIORATION [None]
